FAERS Safety Report 5656737-X (Version None)
Quarter: 2008Q1

REPORT INFORMATION
  Report Type: 
  Country: None (occurrence: None)
  Receive Date: 20080307
  Receipt Date: 20080307
  Transmission Date: 20080703
  Serious: Yes (Life-Threatening, Hospitalization, Disabling)
  Sender: FDA-Public Use
  Company Number: None

PATIENT
  Age: 57 Year
  Sex: Female

DRUGS (2)
  1. PREMARIN [Suspect]
     Indication: HORMONE THERAPY
     Dosage: 1 TABLET DAILY MOUTH
     Route: 048
     Dates: start: 19890101, end: 20060101
  2. AROMASIN [Concomitant]

REACTIONS (1)
  - BREAST CANCER [None]
